FAERS Safety Report 8134153-9 (Version None)
Quarter: 2012Q1

REPORT INFORMATION
  Report Type: 
  Country: None (occurrence: None)
  Receive Date: 20120213
  Receipt Date: 20120213
  Transmission Date: 20120608
  Serious: Yes (Hospitalization, Other)
  Sender: FDA-Public Use
  Company Number: None

PATIENT
  Age: 67 Year
  Sex: Male

DRUGS (5)
  1. CARVEDILOL [Concomitant]
  2. ASPIRIN [Concomitant]
  3. GABAPENTIN [Concomitant]
  4. COLCHICINE [Concomitant]
  5. REVLIMID [Suspect]
     Indication: MULTIPLE MYELOMA
     Dosage: REVLIMID 5 MG DAILY X21D/28D ORALLY
     Route: 048
     Dates: start: 20120101

REACTIONS (5)
  - PYREXIA [None]
  - SEPSIS [None]
  - RENAL FAILURE CHRONIC [None]
  - PNEUMONIA [None]
  - TROPONIN INCREASED [None]
